FAERS Safety Report 11566557 (Version 1)
Quarter: 2015Q3

REPORT INFORMATION
  Report Type: Spontaneous
  Country: US (occurrence: US)
  Receive Date: 20150916
  Receipt Date: 20150916
  Transmission Date: 20151125
  Serious: No
  Sender: FDA-Public Use
  Company Number: US-ELI_LILLY_AND_COMPANY-US200906003608

PATIENT
  Age: 64 Year
  Sex: Female

DRUGS (4)
  1. MULTIVITAMIN [Concomitant]
     Active Substance: VITAMINS
  2. FORTEO [Suspect]
     Active Substance: TERIPARATIDE
     Dosage: 20 UG, DAILY (1/D)
     Dates: start: 2006, end: 20091224
  3. ESTROGEN NOS [Concomitant]
     Active Substance: ESTROGENS
  4. CAFERGOT [Concomitant]
     Active Substance: CAFFEINE\ERGOTAMINE TARTRATE
     Indication: MIGRAINE

REACTIONS (4)
  - Tooth fracture [Not Recovered/Not Resolved]
  - Tooth abscess [Not Recovered/Not Resolved]
  - Pain in jaw [Not Recovered/Not Resolved]
  - Toothache [Not Recovered/Not Resolved]

NARRATIVE: CASE EVENT DATE: 200808
